FAERS Safety Report 25747797 (Version 2)
Quarter: 2025Q3

REPORT INFORMATION
  Report Type: Spontaneous
  Country: CN (occurrence: CN)
  Receive Date: 20250901
  Receipt Date: 20250903
  Transmission Date: 20251020
  Serious: Yes (Other)
  Sender: BRISTOL-MYERS SQUIBB COMPANY
  Company Number: CN-BRISTOL-MYERS SQUIBB COMPANY-2025-117154

PATIENT
  Age: 14 Year
  Sex: Female

DRUGS (14)
  1. DASATINIB [Suspect]
     Active Substance: DASATINIB
     Indication: Acute lymphocytic leukaemia
  2. DASATINIB [Suspect]
     Active Substance: DASATINIB
  3. DASATINIB [Suspect]
     Active Substance: DASATINIB
  4. DASATINIB [Suspect]
     Active Substance: DASATINIB
  5. DASATINIB [Suspect]
     Active Substance: DASATINIB
  6. DASATINIB [Suspect]
     Active Substance: DASATINIB
  7. VINCRISTINE [Concomitant]
     Active Substance: VINCRISTINE
     Indication: Acute lymphocytic leukaemia
  8. VINCRISTINE [Concomitant]
     Active Substance: VINCRISTINE
  9. DAUNORUBICIN [Concomitant]
     Active Substance: DAUNORUBICIN
     Indication: Acute lymphocytic leukaemia
  10. DAUNORUBICIN [Concomitant]
     Active Substance: DAUNORUBICIN
  11. PEG/L-ASPARAGINASE [Concomitant]
     Active Substance: PEGASPARGASE
     Indication: Acute lymphocytic leukaemia
  12. PEG/L-ASPARAGINASE [Concomitant]
     Active Substance: PEGASPARGASE
  13. PREDNISONE [Concomitant]
     Active Substance: PREDNISONE
     Indication: Acute lymphocytic leukaemia
  14. PREDNISONE [Concomitant]
     Active Substance: PREDNISONE

REACTIONS (2)
  - Myelosuppression [Unknown]
  - Hepatic candidiasis [Unknown]
